FAERS Safety Report 16408275 (Version 1)
Quarter: 2020Q3

REPORT INFORMATION
  Report Type: Spontaneous
  Country: DE (occurrence: DE)
  Receive Date: 20190610
  Receipt Date: 20190610
  Transmission Date: 20201104
  Serious: Yes (Hospitalization)
  Sender: FDA-Public Use
  Company Number: DE-ROCHE-2332978

PATIENT
  Sex: Male

DRUGS (1)
  1. IBANDRONIC ACID. [Suspect]
     Active Substance: IBANDRONIC ACID
     Indication: BONE MARROW OEDEMA
     Dosage: 1 TOTAL DOSE
     Route: 041

REACTIONS (2)
  - Deafness [Unknown]
  - Ear disorder [Unknown]
